FAERS Safety Report 18741096 (Version 2)
Quarter: 2021Q2

REPORT INFORMATION
  Report Type: Report from Study
  Country: US (occurrence: US)
  Receive Date: 20210114
  Receipt Date: 20210426
  Transmission Date: 20210717
  Serious: Yes (Hospitalization)
  Sender: FDA-Public Use
  Company Number: US-BAXTER-2021BAX000522

PATIENT
  Age: 14 Year
  Sex: Female
  Weight: 46.4 kg

DRUGS (10)
  1. TEMSIROLIMUS. [Suspect]
     Active Substance: TEMSIROLIMUS
     Indication: EMBRYONAL RHABDOMYOSARCOMA
     Dosage: 1 TO 19 COURSES
     Route: 065
     Dates: start: 20190815
  2. CAMPTOSAR [Suspect]
     Active Substance: IRINOTECAN HYDROCHLORIDE
     Dosage: LAST ADMINISTERED DATE
     Route: 065
     Dates: start: 20200321, end: 20200321
  3. CAMPTOSAR [Suspect]
     Active Substance: IRINOTECAN HYDROCHLORIDE
     Indication: EMBRYONAL RHABDOMYOSARCOMA
     Dosage: 1 TO 19 COURSES
     Route: 065
     Dates: start: 20190815
  4. DACTINOMYCIN [Suspect]
     Active Substance: DACTINOMYCIN
     Indication: EMBRYONAL RHABDOMYOSARCOMA
     Dosage: 1 TO 19 COURSES
     Route: 065
     Dates: start: 20190815
  5. DACTINOMYCIN [Suspect]
     Active Substance: DACTINOMYCIN
     Dosage: LAST ADMINISTERED DOSE
     Route: 065
     Dates: start: 20200521, end: 20200521
  6. TEMSIROLIMUS. [Suspect]
     Active Substance: TEMSIROLIMUS
     Dosage: LAST ADMINISTERED DATE
     Route: 065
     Dates: start: 20200605, end: 20200605
  7. CYCLOPHOSPHAMIDE FOR INJECTION, USP [Suspect]
     Active Substance: CYCLOPHOSPHAMIDE
     Indication: EMBRYONAL RHABDOMYOSARCOMA
     Dosage: 1 TO 19 COURSES
     Route: 065
     Dates: start: 20190815
  8. CYCLOPHOSPHAMIDE FOR INJECTION, USP [Suspect]
     Active Substance: CYCLOPHOSPHAMIDE
     Dosage: LAST ADMINISTERED DATE
     Route: 065
     Dates: start: 20201123, end: 20201123
  9. VINCRISTINE SULFATE. [Suspect]
     Active Substance: VINCRISTINE SULFATE
     Indication: EMBRYONAL RHABDOMYOSARCOMA
     Dosage: 1 TO 19 COURSES
     Route: 065
     Dates: start: 20190815
  10. VINCRISTINE SULFATE. [Suspect]
     Active Substance: VINCRISTINE SULFATE
     Dosage: LAST ADMINISTERED DATE
     Route: 065
     Dates: start: 20200521, end: 20200521

REACTIONS (1)
  - Middle ear inflammation [Not Recovered/Not Resolved]

NARRATIVE: CASE EVENT DATE: 20201215
